FAERS Safety Report 23573555 (Version 1)
Quarter: 2024Q1

REPORT INFORMATION
  Report Type: Report from Study
  Country: US (occurrence: US)
  Receive Date: 20240228
  Receipt Date: 20240228
  Transmission Date: 20240410
  Serious: No
  Sender: FDA-Public Use
  Company Number: US-BIOVITRUM-2023US01840

PATIENT
  Age: 60 Year
  Sex: Male

DRUGS (1)
  1. KINERET [Suspect]
     Active Substance: ANAKINRA
     Indication: Rheumatoid arthritis
     Dosage: 100MG DAILY
     Route: 058
     Dates: start: 20220929

REACTIONS (6)
  - Dry skin [Unknown]
  - Injection site pain [Unknown]
  - Abdominal discomfort [Unknown]
  - Injection site dryness [Unknown]
  - Injection site pruritus [Unknown]
  - Stress at work [Unknown]
